FAERS Safety Report 24058738 (Version 4)
Quarter: 2024Q3

REPORT INFORMATION
  Report Type: Spontaneous
  Country: FR (occurrence: FR)
  Receive Date: 20240708
  Receipt Date: 20240803
  Transmission Date: 20241016
  Serious: Yes (Hospitalization, Other)
  Sender: AUROBINDO
  Company Number: FR-JNJFOC-20240651706

PATIENT
  Age: 58 Year
  Sex: Male
  Weight: 61 kg

DRUGS (6)
  1. TADALAFIL [Suspect]
     Active Substance: TADALAFIL
     Indication: Product used for unknown indication
     Dosage: UNK
     Route: 065
  2. SELEXIPAG [Suspect]
     Active Substance: SELEXIPAG
     Indication: Connective tissue disorder
     Dosage: 200 MICROGRAM, TWO TIMES A DAY
     Route: 048
     Dates: start: 20240611
  3. SELEXIPAG [Suspect]
     Active Substance: SELEXIPAG
     Indication: Pulmonary arterial hypertension
     Dosage: 400 MICROGRAM, TWO TIMES A DAY
     Route: 048
     Dates: start: 20240618
  4. SELEXIPAG [Suspect]
     Active Substance: SELEXIPAG
     Dosage: 200 MICROGRAM
     Route: 048
     Dates: start: 20240625, end: 20240708
  5. SILDENAFIL [Concomitant]
     Active Substance: SILDENAFIL
     Indication: Pulmonary arterial hypertension
     Dosage: UNK
     Route: 065
  6. AMBRISENTAN [Concomitant]
     Active Substance: AMBRISENTAN
     Indication: Pulmonary arterial hypertension
     Dosage: UNK
     Route: 065

REACTIONS (11)
  - Anaemia [Not Recovered/Not Resolved]
  - Hypokinesia [Not Recovered/Not Resolved]
  - Diarrhoea [Recovered/Resolved]
  - Headache [Recovered/Resolved]
  - Musculoskeletal chest pain [Recovered/Resolved]
  - Abdominal pain [Recovered/Resolved]
  - Dyspnoea [Recovered/Resolved]
  - Myalgia [Recovered/Resolved]
  - Chest discomfort [Recovered/Resolved]
  - Intestinal angioma [Not Recovered/Not Resolved]
  - Fatigue [Not Recovered/Not Resolved]

NARRATIVE: CASE EVENT DATE: 20240601
